FAERS Safety Report 5935438-4 (Version None)
Quarter: 2008Q4

REPORT INFORMATION
  Report Type: 
  Country: None (occurrence: None)
  Receive Date: 20081030
  Receipt Date: 20081022
  Transmission Date: 20090506
  Serious: Yes (Other)
  Sender: FDA-Public Use
  Company Number: US-CELGENEUS-163-21880-08101614

PATIENT
  Sex: Male

DRUGS (4)
  1. REVLIMID [Suspect]
     Indication: MULTIPLE MYELOMA
     Route: 048
     Dates: start: 20080723, end: 20081001
  2. REVLIMID [Suspect]
     Dates: start: 20080424, end: 20080701
  3. REVLIMID [Suspect]
     Route: 048
     Dates: start: 20081001
  4. DEXAMETHASONE [Concomitant]
     Indication: DRUG USE FOR UNKNOWN INDICATION
     Route: 065

REACTIONS (2)
  - BONE PAIN [None]
  - SPINAL CORD NEOPLASM [None]
